FAERS Safety Report 22097396 (Version 1)
Quarter: 2023Q1

REPORT INFORMATION
  Report Type: Spontaneous
  Country: US (occurrence: US)
  Receive Date: 20230315
  Receipt Date: 20230315
  Transmission Date: 20230418
  Serious: Yes (Other)
  Sender: FDA-Public Use
  Company Number: US-RECKITT BENCKISER HEALTHCARE INT LIMITED-RB-088612-2023

PATIENT
  Age: 52 Year
  Sex: Female

DRUGS (5)
  1. MAXIMUM STRENGTH MUCINEX FAST-MAX DAY AND NIGHT TIME COLD AND FLU (DOX [Suspect]
     Active Substance: ACETAMINOPHEN\DEXTROMETHORPHAN HYDROBROMIDE\DOXYLAMINE SUCCINATE\GUAIFENESIN\PHENYLEPHRINE HYDROCHLO
     Indication: Cough
     Dosage: 1 DOSAGE FORM, BID IN MORNING AND IN NIGHT
     Route: 048
     Dates: start: 20230306, end: 20230307
  2. MAXIMUM STRENGTH MUCINEX FAST-MAX DAY AND NIGHT TIME COLD AND FLU (DOX [Suspect]
     Active Substance: ACETAMINOPHEN\DEXTROMETHORPHAN HYDROBROMIDE\DOXYLAMINE SUCCINATE\GUAIFENESIN\PHENYLEPHRINE HYDROCHLO
     Indication: Nasopharyngitis
  3. MAXIMUM STRENGTH MUCINEX FAST-MAX DAY AND NIGHT TIME COLD AND FLU (DOX [Suspect]
     Active Substance: ACETAMINOPHEN\DEXTROMETHORPHAN HYDROBROMIDE\DOXYLAMINE SUCCINATE\GUAIFENESIN\PHENYLEPHRINE HYDROCHLO
     Indication: Rhinorrhoea
  4. MAXIMUM STRENGTH MUCINEX FAST-MAX DAY AND NIGHT TIME COLD AND FLU (DOX [Suspect]
     Active Substance: ACETAMINOPHEN\DEXTROMETHORPHAN HYDROBROMIDE\DOXYLAMINE SUCCINATE\GUAIFENESIN\PHENYLEPHRINE HYDROCHLO
     Indication: Fatigue
  5. MAXIMUM STRENGTH MUCINEX FAST-MAX DAY AND NIGHT TIME COLD AND FLU (DOX [Suspect]
     Active Substance: ACETAMINOPHEN\DEXTROMETHORPHAN HYDROBROMIDE\DOXYLAMINE SUCCINATE\GUAIFENESIN\PHENYLEPHRINE HYDROCHLO
     Indication: Respiratory tract congestion

REACTIONS (2)
  - Psychotic disorder [Recovered/Resolved]
  - Product use in unapproved indication [Recovered/Resolved]

NARRATIVE: CASE EVENT DATE: 20230307
